FAERS Safety Report 9747513 (Version 1)
Quarter: 2013Q4

REPORT INFORMATION
  Report Type: Spontaneous
  Country: US (occurrence: US)
  Receive Date: 20131212
  Receipt Date: 20131212
  Transmission Date: 20140711
  Serious: Yes (Life-Threatening, Hospitalization)
  Sender: FDA-Public Use
  Company Number: US-BEH-2013039428

PATIENT
  Sex: Male

DRUGS (1)
  1. ZEMAIRA [Suspect]

REACTIONS (1)
  - Respiratory failure [Unknown]
